FAERS Safety Report 10275728 (Version 1)
Quarter: 2014Q3

REPORT INFORMATION
  Report Type: Spontaneous
  Country: US (occurrence: None)
  Receive Date: 20140701
  Receipt Date: 20140701
  Transmission Date: 20150326
  Serious: Yes (Hospitalization, Other)
  Sender: FDA-Public Use
  Company Number: 2010S1000523

PATIENT
  Age: 52 Year
  Sex: Female

DRUGS (8)
  1. LOTREL (BENAZEPRIL HYDROCHLORIDE, AMLODIPINE BESILATE) [Concomitant]
  2. NOVOLOG [Concomitant]
     Active Substance: INSULIN ASPART
  3. IRON TABLET (IRON) [Concomitant]
  4. FERROUS SULFATE [Concomitant]
     Active Substance: FERROUS SULFATE\FERROUS SULFATE, DRIED
  5. COREG [Concomitant]
     Active Substance: CARVEDILOL
  6. ZAROXOLYN (METOLAZONE) [Concomitant]
  7. PHOSPHO-SODA [Suspect]
     Active Substance: SODIUM PHOSPHATE, DIBASIC\SODIUM PHOSPHATE, MONOBASIC
     Indication: COLONOSCOPY
     Route: 048
     Dates: start: 20030101
  8. LASIX [Concomitant]
     Active Substance: FUROSEMIDE

REACTIONS (11)
  - Weight increased [None]
  - Renal failure chronic [None]
  - Renal osteodystrophy [None]
  - Nephrogenic anaemia [None]
  - Renal failure [None]
  - Hypertension [None]
  - Dialysis [None]
  - Pleural effusion [None]
  - Hyperphosphataemia [None]
  - Hyperkalaemia [None]
  - Atelectasis [None]

NARRATIVE: CASE EVENT DATE: 20060104
